FAERS Safety Report 21227735 (Version 1)
Quarter: 2022Q3

REPORT INFORMATION
  Report Type: Report from Study
  Country: AU (occurrence: AU)
  Receive Date: 20220818
  Receipt Date: 20220818
  Transmission Date: 20221027
  Serious: Yes (Other)
  Sender: FDA-Public Use
  Company Number: AU-GLAXOSMITHKLINE-AU2022APC105915

PATIENT

DRUGS (2)
  1. BELANTAMAB MAFODOTIN [Suspect]
     Active Substance: BELANTAMAB MAFODOTIN
     Indication: Plasma cell myeloma
     Dosage: UNK
     Route: 042
     Dates: start: 20211125, end: 20220106
  2. BELANTAMAB MAFODOTIN [Suspect]
     Active Substance: BELANTAMAB MAFODOTIN
     Dosage: UNK
     Route: 042

REACTIONS (16)
  - Corneal cyst [Unknown]
  - Punctate keratitis [Unknown]
  - Ocular toxicity [Recovering/Resolving]
  - Eye pain [Unknown]
  - Pain [Unknown]
  - Keratitis [Unknown]
  - Photophobia [Unknown]
  - Visual impairment [Unknown]
  - Corneal epithelial microcysts [Unknown]
  - Visual acuity reduced [Unknown]
  - Keratopathy [Unknown]
  - Vision blurred [Unknown]
  - Eye irritation [Unknown]
  - Corneal epithelial microcysts [Unknown]
  - Vital dye staining cornea present [Unknown]
  - Glare [Unknown]

NARRATIVE: CASE EVENT DATE: 20211213
